FAERS Safety Report 6043145-5 (Version None)
Quarter: 2009Q1

REPORT INFORMATION
  Report Type: 
  Country: None (occurrence: None)
  Receive Date: 20090119
  Receipt Date: 20090107
  Transmission Date: 20090719
  Serious: Yes (Hospitalization)
  Sender: FDA-Public Use
  Company Number: US-ROCHE-606760

PATIENT
  Age: 67 Year
  Sex: Female

DRUGS (9)
  1. BONIVA [Suspect]
     Indication: OSTEOPENIA
     Route: 065
     Dates: start: 20080401
  2. LEVOTHYROXINE SODIUM [Concomitant]
  3. ESTRACE [Concomitant]
  4. ZOLOFT [Concomitant]
  5. CALCIUM/MULTIVITAMIN/VITAMIN D [Concomitant]
  6. FLEXERIL [Concomitant]
  7. RESTORIL [Concomitant]
     Dosage: AS NEEDED
  8. VICODIN [Concomitant]
  9. MULTIVITAMIN [Concomitant]

REACTIONS (3)
  - MYALGIA [None]
  - PAIN IN JAW [None]
  - ULCER HAEMORRHAGE [None]
